FAERS Safety Report 5030095-6 (Version None)
Quarter: 2006Q2

REPORT INFORMATION
  Report Type: 
  Country: None (occurrence: None)
  Receive Date: 20060620
  Receipt Date: 20060420
  Transmission Date: 20061013
  Serious: Yes (Death)
  Sender: FDA-Public Use
  Company Number: JP-SANOFI-SYNTHELABO-A01200603251

PATIENT
  Sex: Male
  Weight: 55 kg

DRUGS (9)
  1. BROTIZOLAM [Concomitant]
     Route: 048
     Dates: start: 20051027
  2. ZOFRAN [Concomitant]
     Dates: start: 20050901
  3. SENNARIDE [Concomitant]
     Route: 048
     Dates: start: 20050727
  4. MAGNESIUM OXIDE [Concomitant]
     Route: 048
     Dates: start: 20050727
  5. NOVORAPID [Concomitant]
     Dosage: 10 DF
     Route: 058
     Dates: start: 20050712
  6. SEROTONE [Concomitant]
     Route: 041
     Dates: start: 20050812, end: 20051221
  7. FLUOROURACIL [Suspect]
     Indication: COLON CANCER
     Dosage: 600MG/BODY=377.4 MG/M2 IN BOLUS THEN 3600 MG/BODY=2264.4 MG/M2 INFUSION
     Route: 042
     Dates: start: 20050924, end: 20050925
  8. OXALIPLATIN [Suspect]
     Indication: COLON CANCER
     Dosage: 135 MG/BODY
     Route: 042
     Dates: start: 20050924, end: 20050924
  9. ISOVORIN [Suspect]
     Indication: COLON CANCER
     Route: 042
     Dates: start: 20050924, end: 20050925

REACTIONS (13)
  - ASCITES [None]
  - BILE DUCT STENOSIS [None]
  - BILIARY FIBROSIS [None]
  - BILIARY FISTULA [None]
  - CATHETER RELATED INFECTION [None]
  - DIARRHOEA [None]
  - HAEMOGLOBIN DECREASED [None]
  - HEPATIC FAILURE [None]
  - HEPATIC FIBROSIS [None]
  - INTERSTITIAL LUNG DISEASE [None]
  - LEUKOPENIA [None]
  - NEUTROPENIA [None]
  - VOMITING [None]
